FAERS Safety Report 8613028-2 (Version None)
Quarter: 2012Q3

REPORT INFORMATION
  Report Type: 
  Country: None (occurrence: None)
  Receive Date: 20120822
  Receipt Date: 20120725
  Transmission Date: 20120928
  Serious: Yes (Hospitalization, Other)
  Sender: FDA-Public Use
  Company Number: US-009507513-1202USA03899

PATIENT

DRUGS (6)
  1. ONE-A-DAY ESSENTIAL VITAMINS [Concomitant]
     Indication: ROUTINE HEALTH MAINTENANCE
     Dosage: UNK
     Route: 048
  2. HORMONES (UNSPECIFIED) [Concomitant]
     Indication: PRODUCT USED FOR UNKNOWN INDICATION
     Dates: start: 19800101, end: 20020101
  3. CALCIUM (UNSPECIFIED) [Concomitant]
     Indication: ROUTINE HEALTH MAINTENANCE
     Dosage: UNK
     Route: 048
  4. FOSAMAX [Suspect]
     Dosage: 70 MG, QD
     Dates: start: 20030731
  5. CORTICOSTEROIDS (UNSPECIFIED) [Concomitant]
     Indication: PRODUCT USED FOR UNKNOWN INDICATION
     Dosage: UNK
     Dates: start: 19710101, end: 20120101
  6. FOSAMAX [Suspect]
     Indication: OSTEOPOROSIS
     Dosage: 70MG WEEKLY
     Route: 048
     Dates: start: 20000101, end: 20120111

REACTIONS (63)
  - SOMNOLENCE [None]
  - ESSENTIAL HYPERTENSION [None]
  - ACTINIC KERATOSIS [None]
  - HYPERSENSITIVITY [None]
  - HAEMORRHOIDAL HAEMORRHAGE [None]
  - ARTHRITIS [None]
  - HIATUS HERNIA [None]
  - ANXIETY [None]
  - DIZZINESS POSTURAL [None]
  - BACK PAIN [None]
  - IRRITABLE BOWEL SYNDROME [None]
  - ANAEMIA POSTOPERATIVE [None]
  - EYE PAIN [None]
  - MUSCLE SPASMS [None]
  - TYPE V HYPERLIPIDAEMIA [None]
  - FEMUR FRACTURE [None]
  - BASOSQUAMOUS CARCINOMA [None]
  - DEPRESSION [None]
  - CHRONIC SINUSITIS [None]
  - UPPER RESPIRATORY TRACT INFECTION [None]
  - MUSCLE STRAIN [None]
  - OTITIS MEDIA [None]
  - RHINITIS ALLERGIC [None]
  - PAIN IN EXTREMITY [None]
  - DIVERTICULITIS INTESTINAL HAEMORRHAGIC [None]
  - DIVERTICULUM [None]
  - SLEEP APNOEA SYNDROME [None]
  - PARAESTHESIA [None]
  - FALL [None]
  - IRON DEFICIENCY ANAEMIA [None]
  - SKIN PAPILLOMA [None]
  - SKIN ULCER [None]
  - CONSTIPATION [None]
  - CONTUSION [None]
  - OSTEONECROSIS [None]
  - LOW TURNOVER OSTEOPATHY [None]
  - TEETH BRITTLE [None]
  - BLOOD CHOLESTEROL INCREASED [None]
  - SINUS HEADACHE [None]
  - PROCEDURAL HYPERTENSION [None]
  - OSTEOARTHRITIS [None]
  - PLANTAR FASCIITIS [None]
  - OVERDOSE [None]
  - ARTHRALGIA [None]
  - DEVICE FAILURE [None]
  - PRURITUS [None]
  - VENOUS INSUFFICIENCY [None]
  - INCISION SITE HAEMORRHAGE [None]
  - DIVERTICULITIS [None]
  - PATELLOFEMORAL PAIN SYNDROME [None]
  - CELLULITIS [None]
  - BRONCHITIS [None]
  - GASTROOESOPHAGEAL REFLUX DISEASE [None]
  - URINARY TRACT INFECTION [None]
  - DERMATITIS [None]
  - MUSCULOSKELETAL CHEST PAIN [None]
  - INCREASED TENDENCY TO BRUISE [None]
  - PHARYNGITIS [None]
  - PROCEDURAL HYPOTENSION [None]
  - HAEMORRHOIDS [None]
  - FATIGUE [None]
  - OEDEMA PERIPHERAL [None]
  - FIBROMA [None]
